FAERS Safety Report 22766344 (Version 3)
Quarter: 2023Q4

REPORT INFORMATION
  Report Type: Spontaneous
  Country: CA (occurrence: CA)
  Receive Date: 20230731
  Receipt Date: 20231027
  Transmission Date: 20240110
  Serious: Yes (Other)
  Sender: FDA-Public Use
  Company Number: CA-PFIZER INC-202201206618

PATIENT
  Age: 77 Year
  Sex: Female
  Weight: 169 kg

DRUGS (12)
  1. RUXIENCE [Suspect]
     Active Substance: RITUXIMAB-PVVR
     Indication: Granulomatosis with polyangiitis
     Dosage: 500 MG DAY 1 AND DAY 14
     Route: 042
     Dates: start: 20221102
  2. RUXIENCE [Suspect]
     Active Substance: RITUXIMAB-PVVR
     Indication: Microscopic polyangiitis
     Dosage: 500 MG, DAY 1 AND DAY 15
     Route: 042
     Dates: start: 20221102, end: 20230202
  3. RUXIENCE [Suspect]
     Active Substance: RITUXIMAB-PVVR
     Dosage: 500 MG DAY 1 AND DAY 14
     Route: 042
     Dates: start: 20230202
  4. RUXIENCE [Suspect]
     Active Substance: RITUXIMAB-PVVR
     Dosage: 500 MG, EVERY 6 MONTHS, 3 DOSES - NOT YET STARTED
     Route: 042
  5. RUXIENCE [Suspect]
     Active Substance: RITUXIMAB-PVVR
     Dosage: 500 MG, 36 WEEKS AND 6 DAYS (EVERY 6 MONTHS, 3 DOSES)
     Route: 042
     Dates: start: 20231018
  6. ALLOPURINOL [Concomitant]
     Active Substance: ALLOPURINOL
     Dosage: 1 DF
  7. APIXABAN [Concomitant]
     Active Substance: APIXABAN
     Dosage: 1 DF
  8. FUROSEMIDE [Concomitant]
     Active Substance: FUROSEMIDE
     Dosage: 1 DF
  9. LYRICA [Concomitant]
     Active Substance: PREGABALIN
     Dosage: 1 DF
  10. PREDNISONE [Concomitant]
     Active Substance: PREDNISONE
     Dosage: 1 DF
  11. PREGABALIN [Concomitant]
     Active Substance: PREGABALIN
     Dosage: 1 DF
  12. SYNTHROID [Concomitant]
     Active Substance: LEVOTHYROXINE SODIUM
     Dosage: 1 DF

REACTIONS (14)
  - Cataract [Unknown]
  - Feeling hot [Recovering/Resolving]
  - Pain in extremity [Unknown]
  - Muscle spasms [Unknown]
  - Malaise [Unknown]
  - Illness [Unknown]
  - Swelling face [Not Recovered/Not Resolved]
  - Erythema [Recovered/Resolved]
  - Diarrhoea [Unknown]
  - Pruritus [Unknown]
  - Off label use [Unknown]
  - Off label use [Unknown]
  - Product use issue [Unknown]
  - Inappropriate schedule of product administration [Unknown]

NARRATIVE: CASE EVENT DATE: 20220101
